FAERS Safety Report 8510018-5 (Version None)
Quarter: 2012Q3

REPORT INFORMATION
  Report Type: 
  Country: None (occurrence: None)
  Receive Date: 20120713
  Receipt Date: 20120703
  Transmission Date: 20120928
  Serious: No
  Sender: FDA-Public Use
  Company Number: US-ASTRAZENECA-2010SE57900

PATIENT
  Age: 80 Year
  Sex: Female
  Weight: 104.3 kg

DRUGS (11)
  1. DETROL [Concomitant]
  2. CYMBALTA [Concomitant]
  3. SEROQUEL [Suspect]
     Indication: SLEEP DISORDER
     Route: 048
     Dates: start: 20050101
  4. CELEBREX [Concomitant]
  5. XANAX [Concomitant]
  6. VICODIN [Concomitant]
  7. AMBIEN [Concomitant]
  8. NEXIUM [Suspect]
     Indication: GASTROOESOPHAGEAL REFLUX DISEASE
     Route: 048
     Dates: start: 20020101
  9. ARICEPT [Concomitant]
  10. WARFARIN SODIUM [Concomitant]
  11. LYRICA [Concomitant]

REACTIONS (13)
  - MALAISE [None]
  - FIBROMYALGIA [None]
  - WEIGHT INCREASED [None]
  - IRON DEFICIENCY [None]
  - HEADACHE [None]
  - RASH [None]
  - OFF LABEL USE [None]
  - MUSCULOSKELETAL DISCOMFORT [None]
  - ANXIETY [None]
  - ARTHRITIS [None]
  - ARTHRALGIA [None]
  - EYE IRRITATION [None]
  - ASTHENOPIA [None]
